FAERS Safety Report 19931649 (Version 2)
Quarter: 2021Q4

REPORT INFORMATION
  Report Type: Spontaneous
  Country: US (occurrence: US)
  Receive Date: 20211007
  Receipt Date: 20211019
  Transmission Date: 20220303
  Serious: Yes (Other)
  Sender: FDA-Public Use
  Company Number: US-TEVA-2021-US-1961092

PATIENT
  Age: 43 Year
  Sex: Male

DRUGS (7)
  1. CLONAZEPAM [Suspect]
     Active Substance: CLONAZEPAM
     Indication: Sleep disorder
     Dosage: 2 MILLIGRAM DAILY; EVERY NIGHT
     Route: 065
  2. PROPRANOLOL [Suspect]
     Active Substance: PROPRANOLOL HYDROCHLORIDE
     Indication: Bipolar I disorder
     Dosage: 80 MILLIGRAM DAILY;
     Route: 065
  3. LITHIUM [Suspect]
     Active Substance: LITHIUM
     Indication: Bipolar I disorder
     Dosage: 900MG/1200MG
     Route: 065
  4. OXCARBAZEPINE [Suspect]
     Active Substance: OXCARBAZEPINE
     Indication: Bipolar I disorder
     Dosage: 1200 MILLIGRAM DAILY;
     Route: 065
  5. LAMICTAL [Suspect]
     Active Substance: LAMOTRIGINE
     Indication: Bipolar I disorder
     Dosage: 450 MILLIGRAM DAILY;
     Route: 065
  6. LURASIDONE [Suspect]
     Active Substance: LURASIDONE
     Indication: Bipolar I disorder
     Dosage: 80 MILLIGRAM DAILY;
     Route: 065
  7. BENZTROPINE [Suspect]
     Active Substance: BENZTROPINE
     Indication: Bipolar I disorder
     Dosage: 4 MILLIGRAM DAILY;
     Route: 065

REACTIONS (1)
  - Parasomnia [Unknown]
